FAERS Safety Report 17759604 (Version 2)
Quarter: 2020Q3

REPORT INFORMATION
  Report Type: Spontaneous
  Country: US (occurrence: US)
  Receive Date: 20200508
  Receipt Date: 20200805
  Transmission Date: 20201102
  Serious: No
  Sender: FDA-Public Use
  Company Number: US-PFIZER INC-2018496372

PATIENT
  Age: 15 Year
  Sex: Male
  Weight: 56.25 kg

DRUGS (7)
  1. FLORINEF ACETATE [Concomitant]
     Active Substance: FLUDROCORTISONE ACETATE
     Dosage: UNK
  2. GENOTROPIN [Suspect]
     Active Substance: SOMATROPIN
     Dosage: 3 MG, DAILY
  3. ADVAIR HFA [Concomitant]
     Active Substance: FLUTICASONE PROPIONATE\SALMETEROL XINAFOATE
     Dosage: UNK
  4. GENOTROPIN [Suspect]
     Active Substance: SOMATROPIN
     Indication: ADRENOGENITAL SYNDROME
     Dosage: 4 MG, 1X/DAY
     Route: 058
     Dates: start: 201712
  5. GENOTROPIN [Suspect]
     Active Substance: SOMATROPIN
     Dosage: 4 MG
     Dates: start: 201801
  6. FLUDROCORTISONE [Concomitant]
     Active Substance: FLUDROCORTISONE
     Dosage: UNK
  7. PREDNISONE. [Concomitant]
     Active Substance: PREDNISONE
     Dosage: 5 MG TWO AND A HALF, 2X/DAY
     Route: 048

REACTIONS (7)
  - Device use error [Unknown]
  - Off label use [Unknown]
  - Device difficult to use [Unknown]
  - Device issue [Unknown]
  - Drug dose omission by device [Unknown]
  - Device breakage [Unknown]
  - Product use in unapproved indication [Unknown]

NARRATIVE: CASE EVENT DATE: 201712
